FAERS Safety Report 7549516-X (Version None)
Quarter: 2011Q2

REPORT INFORMATION
  Report Type: 
  Country: None (occurrence: None)
  Receive Date: 20110615
  Receipt Date: 20050203
  Transmission Date: 20111010
  Serious: Yes (Disabling, Other)
  Sender: FDA-Public Use
  Company Number: PHFR2005GB00628

PATIENT
  Sex: Male

DRUGS (1)
  1. CLOZAPINE [Suspect]
     Indication: SCHIZOPHRENIA
     Route: 048
     Dates: start: 20031120

REACTIONS (4)
  - CONDITION AGGRAVATED [None]
  - DEJA VU [None]
  - VISUAL IMPAIRMENT [None]
  - TEMPORAL LOBE EPILEPSY [None]
